FAERS Safety Report 16120584 (Version 3)
Quarter: 2019Q2

REPORT INFORMATION
  Report Type: Report from Study
  Country: US (occurrence: US)
  Receive Date: 20190327
  Receipt Date: 20190425
  Transmission Date: 20190711
  Serious: Yes (Hospitalization)
  Sender: FDA-Public Use
  Company Number: PHHO2019US003150

PATIENT
  Age: 71 Year
  Sex: Female

DRUGS (7)
  1. TYLENOL [Concomitant]
     Active Substance: ACETAMINOPHEN
     Indication: PAIN
     Dosage: 325 MG, QD
     Route: 048
     Dates: start: 20181209
  2. MIRALAX [Concomitant]
     Active Substance: POLYETHYLENE GLYCOL 3350
     Indication: CONSTIPATION
     Dosage: 17 GM QD
     Route: 048
     Dates: start: 20181209
  3. LANTUS [Concomitant]
     Active Substance: INSULIN GLARGINE
     Indication: DIABETES MELLITUS
     Dosage: 100 U,
     Route: 058
     Dates: start: 20181209
  4. DIVON-S [Concomitant]
     Indication: HYPERTENSION
     Dosage: 160/12.5 MG QD
     Route: 048
  5. HUMALOG MIX [Concomitant]
     Active Substance: INSULIN LISPRO
     Indication: DIABETES MELLITUS
     Dosage: 100 U, TID
     Route: 058
     Dates: start: 20181209
  6. CARBOPLATIN. [Suspect]
     Active Substance: CARBOPLATIN
     Indication: BREAST CANCER
     Dosage: 600 MG, UNK
     Route: 042
     Dates: start: 20181219, end: 20190220
  7. XARELTO [Concomitant]
     Active Substance: RIVAROXABAN
     Indication: PECTUS EXCAVATUM
     Dosage: 20 MG, QD
     Route: 048

REACTIONS (1)
  - Presyncope [Recovered/Resolved]

NARRATIVE: CASE EVENT DATE: 20190313
